FAERS Safety Report 17520794 (Version 1)
Quarter: 2020Q1

REPORT INFORMATION
  Report Type: Spontaneous
  Country: US (occurrence: US)
  Receive Date: 20200302
  Receipt Date: 20200302
  Transmission Date: 20200409
  Serious: No
  Sender: FDA-Public Use
  Company Number: None

PATIENT
  Age: 62 Year
  Sex: Male
  Weight: 87.09 kg

DRUGS (1)
  1. TAMOXIFEN (TAMOXIFEN CITRATE 10MG TAB) [Suspect]
     Active Substance: TAMOXIFEN
     Indication: AORTITIS
     Route: 048
     Dates: start: 20180112, end: 20191217

REACTIONS (3)
  - Thrombosis [None]
  - Pain in extremity [None]
  - Swelling [None]

NARRATIVE: CASE EVENT DATE: 20191217
